FAERS Safety Report 26019409 (Version 1)
Quarter: 2025Q4

REPORT INFORMATION
  Report Type: Spontaneous
  Country: EU (occurrence: EU)
  Receive Date: 20251110
  Receipt Date: 20251110
  Transmission Date: 20260118
  Serious: Yes (Hospitalization)
  Sender: ACCORD
  Company Number: None

PATIENT
  Age: 58 Year
  Sex: Female
  Weight: 64.4 kg

DRUGS (5)
  1. CAPECITABINE [Suspect]
     Active Substance: CAPECITABINE
     Indication: Breast cancer metastatic
     Dosage: TOTAL DOSAGE 1800MG PER DAY, IN TWO DIVIDED DOSES
     Dates: start: 20250916, end: 20250919
  2. DEXAMETHASONE [Concomitant]
     Active Substance: DEXAMETHASONE
     Dosage: STRENGTH: 4MG, 1DD0.
  3. METOCLOPRAMIDE [Concomitant]
     Active Substance: METOCLOPRAMIDE
     Dosage: STRENGTH: 10 MG (MILLIGRAM)
  4. ACETAMINOPHEN [Concomitant]
     Active Substance: ACETAMINOPHEN
     Dosage: STRENGTH: 500 MG (MILLIGRAM)
  5. ZOLEDRONIC ACID [Concomitant]
     Active Substance: ZOLEDRONIC ACID
     Dosage: STRENGTH: 0.8 MG/ML

REACTIONS (1)
  - Arteriospasm coronary [Recovered/Resolved]
